FAERS Safety Report 19232387 (Version 2)
Quarter: 2021Q2

REPORT INFORMATION
  Report Type: Other
  Country: GR (occurrence: GR)
  Receive Date: 20210507
  Receipt Date: 20210615
  Transmission Date: 20210717
  Serious: No
  Sender: FDA-Public Use
  Company Number: GR-B.BRAUN MEDICAL INC.-2110348

PATIENT
  Age: 29 Month
  Sex: Male

DRUGS (4)
  1. CLARITHROMYCIN. [Concomitant]
     Active Substance: CLARITHROMYCIN
  2. TICARCILLIN [Concomitant]
     Active Substance: TICARCILLIN
  3. CEFTRIAXONE FOR INJECTION AND DEXTROSE INJECTION 0264?3153?11 (NDA 050 [Suspect]
     Active Substance: CEFTRIAXONE SODIUM
  4. CEFOTAXIME [Concomitant]
     Active Substance: CEFOTAXIME SODIUM

REACTIONS (4)
  - Thrombocytopenia [None]
  - Haemolytic uraemic syndrome [None]
  - Anaemia [None]
  - Renal failure [None]
